FAERS Safety Report 5201849-8 (Version None)
Quarter: 2007Q1

REPORT INFORMATION
  Report Type: 
  Country: None (occurrence: None)
  Receive Date: 20070104
  Receipt Date: 20061214
  Transmission Date: 20070707
  Serious: Yes (Hospitalization, Other)
  Sender: FDA-Public Use
  Company Number: 2006SP007192

PATIENT
  Age: 59 Year
  Sex: Female

DRUGS (4)
  1. VIRAFERONPEG [Suspect]
     Indication: HEPATITIS C
     Dosage: 100 MCG; QW; SC
     Route: 058
     Dates: start: 20060401, end: 20060915
  2. REBETOL [Suspect]
     Indication: HEPATITIS C
     Dosage: 800 MG; QD; PO
     Route: 048
     Dates: start: 20060401, end: 20060915
  3. ZOLOFT [Concomitant]
  4. RIVOTRIL [Concomitant]

REACTIONS (4)
  - ECCHYMOSIS [None]
  - HYPOTHYROIDISM [None]
  - PETECHIAE [None]
  - PLATELET COUNT DECREASED [None]
